FAERS Safety Report 4591614-7 (Version None)
Quarter: 2005Q1

REPORT INFORMATION
  Report Type: 
  Country: None (occurrence: None)
  Receive Date: 20050218
  Receipt Date: 20050202
  Transmission Date: 20050727
  Serious: Yes (Hospitalization)
  Sender: FDA-Public Use
  Company Number: 2005BI002474

PATIENT
  Age: 46 Year
  Sex: Female
  Weight: 72.5755 kg

DRUGS (4)
  1. AVONEX [Suspect]
     Indication: MULTIPLE SCLEROSIS
     Dosage: 30 UG; QW; IM
     Route: 030
     Dates: start: 20041202
  2. ACT [VERTIGO] [Concomitant]
  3. POTASSIUM CHLORIDE [Concomitant]
  4. CHLORDRINE [Concomitant]

REACTIONS (2)
  - FALL [None]
  - FOOT FRACTURE [None]
